FAERS Safety Report 9667861 (Version 1)
Quarter: 2013Q4

REPORT INFORMATION
  Report Type: Spontaneous
  Country: US (occurrence: US)
  Receive Date: 20131104
  Receipt Date: 20131104
  Transmission Date: 20140711
  Serious: No
  Sender: FDA-Public Use
  Company Number: US-BAYER-2013-131446

PATIENT
  Age: 53 Year
  Sex: Female

DRUGS (1)
  1. CLIMARA PRO [Suspect]
     Indication: BLOOD OESTROGEN DECREASED
     Dosage: UNK
     Route: 062
     Dates: start: 2012

REACTIONS (3)
  - Inappropriate schedule of drug administration [None]
  - Product adhesion issue [None]
  - Product adhesion issue [None]
